FAERS Safety Report 13771181 (Version 1)
Quarter: 2017Q3

REPORT INFORMATION
  Report Type: Spontaneous
  Country: US (occurrence: US)
  Receive Date: 20170720
  Receipt Date: 20170720
  Transmission Date: 20171127
  Serious: Yes (Other)
  Sender: FDA-Public Use
  Company Number: None

PATIENT
  Age: 69 Year
  Sex: Female
  Weight: 66.6 kg

DRUGS (5)
  1. Y-SITE PRIMING VOLUME [Concomitant]
  2. SODIUM CHLORIDE. [Concomitant]
     Active Substance: SODIUM CHLORIDE
  3. VIGON [Concomitant]
  4. REMICADE [Suspect]
     Active Substance: INFLIXIMAB
     Indication: ANKYLOSING SPONDYLITIS
     Dosage: ?          OTHER DOSE:MG;OTHER FREQUENCY:EVERY 6 WEEKS;?
     Route: 041
  5. SAF-T-INTIMA [Concomitant]

REACTIONS (7)
  - Blood pressure increased [None]
  - Infusion related reaction [None]
  - Hypersensitivity [None]
  - Chills [None]
  - Flushing [None]
  - Tremor [None]
  - Respiratory rate increased [None]

NARRATIVE: CASE EVENT DATE: 20170713
